FAERS Safety Report 5593319-2 (Version None)
Quarter: 2008Q1

REPORT INFORMATION
  Report Type: 
  Country: None (occurrence: None)
  Receive Date: 20080116
  Receipt Date: 20080110
  Transmission Date: 20080703
  Serious: Yes (Hospitalization, Congenital Anomaly)
  Sender: FDA-Public Use
  Company Number: B0502563B

PATIENT
  Sex: Female
  Weight: 1.3 kg

DRUGS (5)
  1. COMBIVIR [Suspect]
     Indication: HIV INFECTION
     Dates: start: 20070808, end: 20071207
  2. KALETRA [Suspect]
     Indication: HIV INFECTION
     Dates: start: 20070808, end: 20071207
  3. SUSTIVA [Suspect]
     Indication: HIV INFECTION
     Dates: start: 20070509, end: 20070808
  4. TRUVADA [Suspect]
     Indication: HIV INFECTION
     Dates: start: 20070509, end: 20071207
  5. DEPAMIDE [Suspect]
     Dosage: 1200MG PER DAY
     Dates: start: 20070509, end: 20070804

REACTIONS (4)
  - DRUG EXPOSURE DURING PREGNANCY [None]
  - PREMATURE BABY [None]
  - RESPIRATORY DISTRESS [None]
  - TALIPES [None]
